FAERS Safety Report 8341169-6 (Version None)
Quarter: 2012Q2

REPORT INFORMATION
  Report Type: 
  Country: None (occurrence: None)
  Receive Date: 20120507
  Receipt Date: 20120504
  Transmission Date: 20120825
  Serious: Yes (Other)
  Sender: FDA-Public Use
  Company Number: GB-GILEAD-2012-0054579

PATIENT
  Age: 30 Year
  Sex: Male

DRUGS (1)
  1. EVIPLERA [Suspect]
     Indication: HIV INFECTION
     Route: 048
     Dates: start: 20120405

REACTIONS (2)
  - INSOMNIA [None]
  - INCREASED APPETITE [None]
